FAERS Safety Report 21033430 (Version 1)
Quarter: 2022Q3

REPORT INFORMATION
  Report Type: Spontaneous
  Country: US (occurrence: US)
  Receive Date: 20220701
  Receipt Date: 20220701
  Transmission Date: 20221027
  Serious: Yes (Hospitalization, Other)
  Sender: FDA-Public Use
  Company Number: US-Accord-267668

PATIENT
  Age: 32 Year
  Sex: Female

DRUGS (29)
  1. ETOPOSIDE [Suspect]
     Active Substance: ETOPOSIDE
     Indication: B precursor type acute leukaemia
     Dosage: 1 CYCLE
     Dates: start: 202101, end: 2021
  2. METHOTREXATE [Suspect]
     Active Substance: METHOTREXATE
     Indication: B precursor type acute leukaemia
     Dosage: INTRATHECAL
     Route: 037
     Dates: start: 201904
  3. ADRIAMYCIN [Suspect]
     Active Substance: DOXORUBICIN HYDROCHLORIDE
     Indication: B precursor type acute leukaemia
     Dosage: CYCLE 3 PART A WAS INTERRUPTED
     Dates: start: 202102, end: 202105
  4. CYCLOPHOSPHAMIDE [Suspect]
     Active Substance: CYCLOPHOSPHAMIDE
     Indication: B precursor type acute leukaemia
     Dosage: CYCLE 3 PART A WAS INTERRUPTED
     Dates: start: 202102, end: 202105
  5. CYTARABINE [Suspect]
     Active Substance: CYTARABINE
     Indication: Nervous system disorder
     Dosage: EVERY TWO WEEKS FOR FIVE CYCLE
     Dates: start: 202001, end: 2020
  6. DEXAMETHASONE [Suspect]
     Active Substance: DEXAMETHASONE
     Indication: B precursor type acute leukaemia
     Dates: end: 202107
  7. DASATINIB [Suspect]
     Active Substance: DASATINIB
     Indication: B precursor type acute leukaemia
     Dates: start: 2019
  8. HYDROCORTISONE [Suspect]
     Active Substance: HYDROCORTISONE
     Indication: Nervous system disorder
     Dosage: EVERY TWO WEEKS FOR FIVE CYCLES
     Dates: start: 202001, end: 2020
  9. IFOSFAMIDE [Suspect]
     Active Substance: IFOSFAMIDE
     Indication: B precursor type acute leukaemia
     Dates: start: 202101, end: 2021
  10. MERCAPTOPURINE [Suspect]
     Active Substance: MERCAPTOPURINE
     Indication: B precursor type acute leukaemia
     Dates: start: 201908, end: 202001
  11. MITOXANTRONE [Suspect]
     Active Substance: MITOXANTRONE HYDROCHLORIDE
     Indication: B precursor type acute leukaemia
     Dosage: 1 CYCLE
     Dates: start: 202101, end: 2021
  12. PREDNISONE [Suspect]
     Active Substance: PREDNISONE
     Indication: B precursor type acute leukaemia
     Dates: start: 201908, end: 202001
  13. VINCRISTINE SULFATE [Suspect]
     Active Substance: VINCRISTINE SULFATE
     Indication: B precursor type acute leukaemia
     Dates: start: 201904, end: 2019
  14. ISONIAZID [Concomitant]
     Active Substance: ISONIAZID
     Indication: Tuberculosis
  15. CYCLOPHOSPHAMIDE [Suspect]
     Active Substance: CYCLOPHOSPHAMIDE
     Indication: B precursor type acute leukaemia
     Dosage: CYCLE 3 PART A WAS INTERRUPTED
     Dates: start: 201904, end: 2019
  16. ADRIAMYCIN [Suspect]
     Active Substance: DOXORUBICIN HYDROCHLORIDE
     Indication: B precursor type acute leukaemia
     Dosage: CYCLE 3 PART A WAS INTERRUPTED
     Dates: start: 201904, end: 2019
  17. METHOTREXATE [Suspect]
     Active Substance: METHOTREXATE
     Indication: B precursor type acute leukaemia
     Dates: start: 201908, end: 202001
  18. DEXAMETHASONE [Suspect]
     Active Substance: DEXAMETHASONE
     Indication: B precursor type acute leukaemia
     Dosage: CYCLE 3 PART A WAS INTERRUPTED
     Dates: start: 202101, end: 202105
  19. DEXAMETHASONE [Suspect]
     Active Substance: DEXAMETHASONE
     Indication: B precursor type acute leukaemia
     Dates: start: 201904, end: 2019
  20. ADRIAMYCIN [Suspect]
     Active Substance: DOXORUBICIN HYDROCHLORIDE
     Indication: B precursor type acute leukaemia
     Dates: end: 202107
  21. HYDROCORTISONE [Suspect]
     Active Substance: HYDROCORTISONE
     Indication: Nervous system disorder
     Dates: start: 202007
  22. METHOTREXATE [Suspect]
     Active Substance: METHOTREXATE
     Indication: B precursor type acute leukaemia
     Dosage: HIGH-DOSE
     Dates: start: 202001
  23. METHOTREXATE [Suspect]
     Active Substance: METHOTREXATE
     Indication: B precursor type acute leukaemia
     Dosage: EVERY TWO WEEKS FOR FIVE CYCLES
     Route: 037
     Dates: start: 202001, end: 2020
  24. METHOTREXATE [Suspect]
     Active Substance: METHOTREXATE
     Indication: B precursor type acute leukaemia
     Route: 037
     Dates: start: 202007
  25. VINCRISTINE SULFATE [Suspect]
     Active Substance: VINCRISTINE SULFATE
     Indication: B precursor type acute leukaemia
     Dates: end: 202107
  26. VINCRISTINE SULFATE [Suspect]
     Active Substance: VINCRISTINE SULFATE
     Indication: B precursor type acute leukaemia
     Dosage: CYCLE 3 PART A WAS INTERRUPTED
     Dates: start: 202102, end: 202105
  27. CYCLOPHOSPHAMIDE [Suspect]
     Active Substance: CYCLOPHOSPHAMIDE
     Indication: B precursor type acute leukaemia
     Dates: start: 202107
  28. CYTARABINE [Suspect]
     Active Substance: CYTARABINE
     Indication: Nervous system disorder
     Dates: start: 201904
  29. CYTARABINE [Suspect]
     Active Substance: CYTARABINE
     Indication: Nervous system disorder
     Dosage: EVERY TWO WEEKS FOR FIVE CYCLE
     Dates: start: 202007

REACTIONS (6)
  - Strongyloidiasis [Recovering/Resolving]
  - Pericardial effusion [Recovering/Resolving]
  - Acute respiratory failure [Recovering/Resolving]
  - Appendicitis [Unknown]
  - Pulmonary oedema [Recovering/Resolving]
  - Staphylococcal infection [Recovering/Resolving]

NARRATIVE: CASE EVENT DATE: 20210501
